FAERS Safety Report 8327506-7 (Version None)
Quarter: 2012Q2

REPORT INFORMATION
  Report Type: 
  Country: None (occurrence: None)
  Receive Date: 20120502
  Receipt Date: 20120424
  Transmission Date: 20120825
  Serious: Yes (Death, Other)
  Sender: FDA-Public Use
  Company Number: US-BAYER-2012-041777

PATIENT
  Age: 14 Year
  Sex: Female
  Weight: 91 kg

DRUGS (26)
  1. NSAID'S [Concomitant]
     Dosage: UNK UNK, PRN
  2. DROSPIRENONE AND ETHINYL ESTRADIOL [Suspect]
     Dosage: UNK
     Dates: start: 20100101, end: 20100501
  3. ADVAIR DISKUS 100/50 [Concomitant]
  4. CONCERTA [Concomitant]
     Dosage: 27 MG, QD
  5. ANTI-ASTHMATICS [Concomitant]
     Dosage: UNK
     Dates: start: 20060101, end: 20100516
  6. OMEPRAZOLE [Concomitant]
  7. PERMETHRIN [Concomitant]
  8. PROMETHAZINE [Concomitant]
  9. PHENERGAN [Concomitant]
     Dosage: 25 MG, EVERY 6 HOURS
     Route: 048
  10. MAXALT-MLT [Concomitant]
     Dosage: 5 MG, PRN
  11. PREDNISONE [Concomitant]
  12. VICODIN [Concomitant]
     Dosage: 5/500 MG, EVERY 4-6 HOURS
  13. NITROFURANTOIN [Concomitant]
  14. CICLOPIROX [Concomitant]
  15. AZITHROMYCIN [Concomitant]
  16. CERON-DM SYRUP (CHLORPHENIRAMINE MALEATE, PHENYLEPHRINE HYDROCHLOR [Concomitant]
  17. HYDROCODONE BITARTRATE AND ACETAMINOPHEN [Concomitant]
  18. ANTIBIOTICS [Concomitant]
     Dosage: UNK UNK, PRN
  19. ZYRTEC [Concomitant]
  20. MOBIC [Concomitant]
     Dosage: 7.5 MG, BID
  21. ALBUTEROL [Concomitant]
  22. FLONASE [Concomitant]
     Dosage: 50 MCG/24HR, QD
  23. SINGULAIR [Concomitant]
  24. PROAIR HFA [Concomitant]
  25. AMITRIPTYLINE HCL [Concomitant]
     Dosage: 50 MG, QD
  26. PROVENTIL-HFA [Concomitant]
     Dosage: 90 MCG, QID

REACTIONS (3)
  - DEEP VEIN THROMBOSIS [None]
  - PULMONARY EMBOLISM [None]
  - PULMONARY INFARCTION [None]
